FAERS Safety Report 8047978-5 (Version None)
Quarter: 2012Q1

REPORT INFORMATION
  Report Type: 
  Country: None (occurrence: None)
  Receive Date: 20120116
  Receipt Date: 20120106
  Transmission Date: 20120608
  Serious: Yes (Hospitalization, Other)
  Sender: FDA-Public Use
  Company Number: US-RB-035247-11

PATIENT
  Age: 32 Year
  Sex: Male

DRUGS (3)
  1. KLONOPIN [Concomitant]
     Indication: MUSCLE TIGHTNESS
     Dosage: UNKNOWN DOSING REGIMEN
     Route: 065
  2. SUBOXONE [Suspect]
     Indication: DRUG DEPENDENCE
     Dosage: UNKNOWN DOSING REGIMEN
     Route: 060
     Dates: end: 20110101
  3. SUBOXONE [Suspect]
     Indication: DRUG DEPENDENCE
     Dosage: 16 MG DAILY
     Route: 060
     Dates: start: 20110101

REACTIONS (11)
  - HYPOXIA [None]
  - COMA [None]
  - OFF LABEL USE [None]
  - BRAIN INJURY [None]
  - MUSCLE DISORDER [None]
  - MUSCULOSKELETAL STIFFNESS [None]
  - SUBSTANCE ABUSE [None]
  - SPEECH DISORDER [None]
  - MUSCLE SPASMS [None]
  - MYOCARDIAL INFARCTION [None]
  - ARTERIAL OCCLUSIVE DISEASE [None]
